FAERS Safety Report 4413106-8 (Version None)
Quarter: 2004Q3

REPORT INFORMATION
  Report Type: 
  Country: None (occurrence: None)
  Receive Date: 20040727
  Receipt Date: 20040716
  Transmission Date: 20050211
  Serious: Yes (Hospitalization, Other)
  Sender: FDA-Public Use
  Company Number: 2004222934US

PATIENT
  Age: 54 Year
  Sex: Female

DRUGS (2)
  1. BEXTRA [Suspect]
     Indication: PSORIATIC ARTHROPATHY
     Dosage: 20 MG, QD,
     Dates: start: 20040309, end: 20040101
  2. SYNTHROID [Concomitant]

REACTIONS (1)
  - STEVENS-JOHNSON SYNDROME [None]
